FAERS Safety Report 10920049 (Version 1)
Quarter: 2015Q1

REPORT INFORMATION
  Report Type: Spontaneous
  Country: US (occurrence: US)
  Receive Date: 20150317
  Receipt Date: 20150317
  Transmission Date: 20150721
  Serious: Yes (Hospitalization)
  Sender: FDA-Public Use
  Company Number: US-BEH-2015049518

PATIENT
  Age: 56 Year
  Sex: Female
  Weight: 66.7 kg

DRUGS (53)
  1. BUTORPHANOL [Concomitant]
     Active Substance: BUTORPHANOL
  2. NEURONTIN [Concomitant]
     Active Substance: GABAPENTIN
  3. MECLIZINE [Concomitant]
     Active Substance: MECLIZINE\MECLIZINE HYDROCHLORIDE
  4. CHLORTHALIDONE. [Concomitant]
     Active Substance: CHLORTHALIDONE
  5. SINGULAIR [Concomitant]
     Active Substance: MONTELUKAST SODIUM
  6. LYRICA [Concomitant]
     Active Substance: PREGABALIN
  7. CEFTIN [Concomitant]
     Active Substance: CEFUROXIME AXETIL
  8. BACLOFEN. [Concomitant]
     Active Substance: BACLOFEN
  9. TEGRETOL [Concomitant]
     Active Substance: CARBAMAZEPINE
  10. PROMETHAZINE [Concomitant]
     Active Substance: PROMETHAZINE\PROMETHAZINE HYDROCHLORIDE
  11. NYSTATIN. [Concomitant]
     Active Substance: NYSTATIN
  12. TOPAMAX [Concomitant]
     Active Substance: TOPIRAMATE
  13. FROVA [Concomitant]
     Active Substance: FROVATRIPTAN SUCCINATE
  14. PRIVIGEN [Suspect]
     Active Substance: HUMAN IMMUNOGLOBULIN G
     Indication: IMMUNODEFICIENCY COMMON VARIABLE
     Route: 042
  15. PRIVIGEN [Suspect]
     Active Substance: HUMAN IMMUNOGLOBULIN G
     Indication: MULTIPLE SCLEROSIS
     Route: 042
  16. RELPAX [Concomitant]
     Active Substance: ELETRIPTAN HYDROBROMIDE
  17. MARINOL [Concomitant]
     Active Substance: DRONABINOL
  18. MIRALAX [Concomitant]
     Active Substance: POLYETHYLENE GLYCOL 3350
  19. AMITRIPTYLINE [Concomitant]
     Active Substance: AMITRIPTYLINE
  20. NORMAL SALINE [Concomitant]
     Active Substance: SODIUM CHLORIDE
  21. MELATONIN [Concomitant]
     Active Substance: MELATONIN
  22. CRANBERRY. [Concomitant]
     Active Substance: CRANBERRY
  23. VALIUM [Concomitant]
     Active Substance: DIAZEPAM
  24. DRONABINOL. [Concomitant]
     Active Substance: DRONABINOL
  25. MAALOX ANTACID [Concomitant]
     Active Substance: ALUMINUM HYDROXIDE\DIMETHICONE\MAGNESIUM HYDROXIDE
  26. DHEA ACETATE [Concomitant]
  27. IBUPROFEN. [Concomitant]
     Active Substance: IBUPROFEN
  28. BENICAR [Concomitant]
     Active Substance: OLMESARTAN MEDOXOMIL
  29. ALBUTEROL. [Concomitant]
     Active Substance: ALBUTEROL
  30. ATIVAN [Concomitant]
     Active Substance: LORAZEPAM
  31. ZITHROMAX [Concomitant]
     Active Substance: AZITHROMYCIN DIHYDRATE
  32. TRAMADOL [Concomitant]
     Active Substance: TRAMADOL
  33. CITALOPRAM [Concomitant]
     Active Substance: CITALOPRAM HYDROBROMIDE
  34. ZEGERID [Concomitant]
     Active Substance: OMEPRAZOLE\SODIUM BICARBONATE
  35. RANITIDINE [Concomitant]
     Active Substance: RANITIDINE\RANITIDINE HYDROCHLORIDE
  36. AZITHROMYCIN [Concomitant]
     Active Substance: AZITHROMYCIN ANHYDROUS
  37. SONATA [Concomitant]
     Active Substance: ZALEPLON
  38. CYANOCOBALAMIN. [Concomitant]
     Active Substance: CYANOCOBALAMIN
  39. EFFEXOR [Concomitant]
     Active Substance: VENLAFAXINE HYDROCHLORIDE
  40. XYLOCAINE [Concomitant]
     Active Substance: LIDOCAINE HYDROCHLORIDE
  41. AMLODIPINE [Concomitant]
     Active Substance: AMLODIPINE BESYLATE
  42. DIPHENHYDRAMINE [Concomitant]
     Active Substance: DIPHENHYDRAMINE
  43. ZOFRAN [Concomitant]
     Active Substance: ONDANSETRON HYDROCHLORIDE
  44. NEXIUM [Concomitant]
     Active Substance: ESOMEPRAZOLE MAGNESIUM
  45. MORPHINE [Concomitant]
     Active Substance: MORPHINE
  46. CHLORPROMAZINE [Concomitant]
     Active Substance: CHLORPROMAZINE
  47. SCOPOLAMINE [Concomitant]
     Active Substance: SCOPOLAMINE
  48. ACETAMINOPHEN. [Concomitant]
     Active Substance: ACETAMINOPHEN
  49. HEPARIN [Concomitant]
     Active Substance: HEPARIN SODIUM
  50. SODIUM CHLORIDE. [Concomitant]
     Active Substance: SODIUM CHLORIDE
  51. EPIPEN [Concomitant]
     Active Substance: EPINEPHRINE
  52. NAMENDA [Concomitant]
     Active Substance: MEMANTINE HYDROCHLORIDE
  53. MUCINEX [Concomitant]
     Active Substance: GUAIFENESIN

REACTIONS (1)
  - Serum sickness [Unknown]

NARRATIVE: CASE EVENT DATE: 20150302
